FAERS Safety Report 4785851-6 (Version None)
Quarter: 2005Q3

REPORT INFORMATION
  Report Type: 
  Country: None (occurrence: None)
  Receive Date: 20050930
  Receipt Date: 20050907
  Transmission Date: 20060218
  Serious: Yes (Death)
  Sender: FDA-Public Use
  Company Number: DKLU1016685

PATIENT
  Age: 45 Year
  Sex: Male

DRUGS (1)
  1. RISPERIDONE [Suspect]
     Indication: SCHIZOPHRENIA
     Dosage: 5 MG MILLIGRAM (S) ORAL
     Route: 048
     Dates: start: 20040302, end: 20041128

REACTIONS (3)
  - COMPLETED SUICIDE [None]
  - FALL [None]
  - INJURY ASPHYXIATION [None]
